FAERS Safety Report 13994351 (Version 1)
Quarter: 2017Q3

REPORT INFORMATION
  Report Type: Other
  Country: GB (occurrence: US)
  Receive Date: 20170920
  Receipt Date: 20170920
  Transmission Date: 20171128
  Serious: Yes (Life-Threatening, Hospitalization, Other)
  Sender: FDA-Public Use
  Company Number: US-INTERNATIONAL MEDICATION SYSTEMS, LIMITED-2027023

PATIENT
  Age: 74 Year
  Sex: Female

DRUGS (2)
  1. MORPHINE INJECTION 35MG/ML [Suspect]
     Active Substance: MORPHINE
     Indication: PAIN
     Route: 037
  2. BUPIVACAINE INJECTION 10MG/ML [Suspect]
     Active Substance: BUPIVACAINE
     Route: 037

REACTIONS (5)
  - Neurogenic shock [Unknown]
  - Status epilepticus [Recovered/Resolved]
  - Toxicity to various agents [Unknown]
  - Device malfunction [Unknown]
  - Peripheral sensorimotor neuropathy [Recovering/Resolving]
